FAERS Safety Report 8805986 (Version 5)
Quarter: 2014Q4

REPORT INFORMATION
  Report Type: Spontaneous
  Country: JP (occurrence: None)
  Receive Date: 20120918
  Receipt Date: 20141021
  Transmission Date: 20150529
  Serious: Yes (Other)
  Sender: FDA-Public Use
  Company Number: 2010JP000467

PATIENT
  Age: 30 Year
  Sex: Female
  Weight: 51 kg

DRUGS (11)
  1. SELARA (EPLERENONE) [Concomitant]
  2. PREDNISOLONE (PREDNISOLONE) [Concomitant]
     Active Substance: PREDNISOLONE
  3. WARFARIN (WARFARIN) [Concomitant]
     Active Substance: WARFARIN
  4. NU-LOTAN (LOSARTAN POTASSIUM) [Concomitant]
  5. BAYASPIRIN (ACETYLSALICYLIC ACID) [Concomitant]
  6. PREDNISOLONE. [Suspect]
     Active Substance: PREDNISOLONE
     Indication: LUPUS NEPHRITIS
     Route: 048
     Dates: start: 20080813, end: 20080819
  7. ZETIA (EZETIMIBE) [Concomitant]
  8. PARIET (RABEPRAZOLE SODIUM) [Concomitant]
  9. PROGRAF [Suspect]
     Active Substance: TACROLIMUS\TACROLIMUS ANHYDROUS
     Indication: LUPUS NEPHRITIS
     Route: 048
     Dates: start: 20080813
  10. MUCOSTA (REBAMIPIDE) [Concomitant]
  11. BENET (RISEDRONATE SODIUM) [Concomitant]

REACTIONS (4)
  - Microcytic anaemia [None]
  - Disease progression [None]
  - Herpes zoster [None]
  - Infection [None]

NARRATIVE: CASE EVENT DATE: 20090604
